FAERS Safety Report 15783666 (Version 6)
Quarter: 2020Q1

REPORT INFORMATION
  Report Type: Spontaneous
  Country: US (occurrence: US)
  Receive Date: 20190102
  Receipt Date: 20200309
  Transmission Date: 20200409
  Serious: No
  Sender: FDA-Public Use
  Company Number: US-PFIZER INC-2017230089

PATIENT
  Age: 67 Year
  Sex: Female
  Weight: 56 kg

DRUGS (8)
  1. LORAZEPAM. [Concomitant]
     Active Substance: LORAZEPAM
     Dosage: 1 MG, AS NEEDED (TAKE 2 TABLET BY ORAL ROUTE 3 TIMES EVERY DAY AS NEEDED)
     Route: 048
  2. FLUOXETINE [Concomitant]
     Active Substance: FLUOXETINE HYDROCHLORIDE
     Dosage: 10 MG, 1X/DAY (TAKE 1 TABLET BY ORAL ROUTE EVERY DAY)
     Route: 048
  3. CETIRIZINE [Concomitant]
     Active Substance: CETIRIZINE HYDROCHLORIDE
     Dosage: 10 MG, 1X/DAY (TAKE 1 TABLET BY ORAL ROUTE EVERY DAY)
     Route: 048
     Dates: start: 20181115
  4. AMITRIPTYLINE [Concomitant]
     Active Substance: AMITRIPTYLINE
     Indication: SLEEP DISORDER
     Dosage: 10 MG, 1X/DAY (EVERY NIGHT AT BEDTIME)
     Route: 048
     Dates: start: 20180410
  5. LYRICA [Suspect]
     Active Substance: PREGABALIN
     Indication: FIBROMYALGIA
     Dosage: 150 MG, 3X/DAY
     Route: 048
  6. CYCLOBENZAPRINE. [Concomitant]
     Active Substance: CYCLOBENZAPRINE
     Dosage: 10 MG, 3X/DAY (TAKE 1 TABLET BY ORAL ROUTE 3 TIMES EVERY DAY)
     Route: 048
     Dates: start: 20181115
  7. LYRICA [Suspect]
     Active Substance: PREGABALIN
     Indication: NECK PAIN
     Dosage: 150 MG, 2X/DAY (TAKE 1 CAPSULE BY ORAL ROUTE 2 TIMES EVERY DAY)
     Route: 048
  8. PROAIR HFA [Concomitant]
     Active Substance: ALBUTEROL SULFATE
     Dosage: 2 DF, AS NEEDED (INHALE 2 PUFF BY INHALATION ROUTE EVERY 4-6 HOURS AS NEEDED)
     Route: 055

REACTIONS (5)
  - Arthralgia [Unknown]
  - Muscle spasms [Unknown]
  - Withdrawal syndrome [Unknown]
  - Sensitivity to weather change [Unknown]
  - Blood pressure abnormal [Unknown]
